FAERS Safety Report 18011549 (Version 2)
Quarter: 2020Q3

REPORT INFORMATION
  Report Type: Spontaneous
  Country: US (occurrence: US)
  Receive Date: 20200713
  Receipt Date: 20200805
  Transmission Date: 20201103
  Serious: No
  Sender: FDA-Public Use
  Company Number: US-ELI_LILLY_AND_COMPANY-US202007002544

PATIENT
  Age: 77 Year
  Sex: Female

DRUGS (2)
  1. VERZENIO [Suspect]
     Active Substance: ABEMACICLIB
     Indication: BREAST CANCER
     Dosage: 100 MG, BID
     Route: 048
     Dates: start: 201907
  2. LETROZOLE. [Concomitant]
     Active Substance: LETROZOLE
     Indication: BREAST CANCER

REACTIONS (2)
  - Rash [Not Recovered/Not Resolved]
  - Moyamoya disease [Not Recovered/Not Resolved]

NARRATIVE: CASE EVENT DATE: 202006
